FAERS Safety Report 11909993 (Version 2)
Quarter: 2016Q1

REPORT INFORMATION
  Report Type: Spontaneous
  Country: US (occurrence: US)
  Receive Date: 20160112
  Receipt Date: 20160209
  Transmission Date: 20160526
  Serious: Yes (Other)
  Sender: FDA-Public Use
  Company Number: US-JNJFOC-20160106365

PATIENT
  Age: 33 Year
  Sex: Female
  Weight: 95.26 kg

DRUGS (8)
  1. DIFLUCAN [Concomitant]
     Active Substance: FLUCONAZOLE
     Dosage: ONE TABLET ON 9-JAN-2014 AND TO REPEAT DOSE IN ONE WEEK
     Route: 048
     Dates: start: 20140109
  2. FLUTICASONE PROPIONATE. [Concomitant]
     Active Substance: FLUTICASONE PROPIONATE
     Route: 065
     Dates: start: 20130417
  3. STELARA [Suspect]
     Active Substance: USTEKINUMAB
     Indication: PSORIASIS
     Route: 058
     Dates: start: 20151111
  4. CYMBALTA [Concomitant]
     Active Substance: DULOXETINE HYDROCHLORIDE
     Dosage: ONCE A DAY FOR 1 WEEK FROM 23-OCT-2013, THEN TWICE A DAY
     Route: 048
     Dates: start: 20131023
  5. AMLODIPINE BESYLATE. [Concomitant]
     Active Substance: AMLODIPINE BESYLATE
     Route: 048
     Dates: start: 20130829
  6. CETIRIZINE HYDROCHLORIDE. [Concomitant]
     Active Substance: CETIRIZINE HYDROCHLORIDE
     Route: 048
     Dates: start: 20130417
  7. PENICILLIN V POTASSIUM. [Concomitant]
     Active Substance: PENICILLIN V POTASSIUM
     Route: 048
     Dates: start: 20140115
  8. OMEPRAZOLE. [Concomitant]
     Active Substance: OMEPRAZOLE
     Dosage: ONE TABLET AT BED TIME
     Route: 048
     Dates: start: 20131023

REACTIONS (3)
  - Hepatosplenomegaly [Unknown]
  - Hepatic steatosis [Unknown]
  - Nausea [Unknown]

NARRATIVE: CASE EVENT DATE: 20160107
